FAERS Safety Report 19204727 (Version 1)
Quarter: 2021Q2

REPORT INFORMATION
  Report Type: Spontaneous
  Country: BR (occurrence: BR)
  Receive Date: 20210503
  Receipt Date: 20210503
  Transmission Date: 20210717
  Serious: Yes (Death, Hospitalization, Other)
  Sender: FDA-Public Use
  Company Number: BR-ASTELLAS-2021US015500

PATIENT
  Age: 68 Year
  Sex: Male

DRUGS (1)
  1. AMPHOTERICIN B, LIPOSOME [Suspect]
     Active Substance: AMPHOTERICIN B
     Indication: RESPIRATORY TRACT INFECTION
     Route: 042
     Dates: start: 20210311, end: 20210329

REACTIONS (8)
  - Gamma-glutamyltransferase abnormal [Fatal]
  - Blood alkaline phosphatase abnormal [Fatal]
  - Cardio-respiratory arrest [Fatal]
  - Hypercapnia [Fatal]
  - Drug-induced liver injury [Fatal]
  - Hypoxia [Fatal]
  - Hepatic function abnormal [Fatal]
  - Death [Fatal]

NARRATIVE: CASE EVENT DATE: 202103
